FAERS Safety Report 12490774 (Version 1)
Quarter: 2016Q2

REPORT INFORMATION
  Report Type: Spontaneous
  Country: US (occurrence: US)
  Receive Date: 20160622
  Receipt Date: 20160622
  Transmission Date: 20160815
  Serious: No
  Sender: FDA-Public Use
  Company Number: US-JAZZ-2015-US-020676

PATIENT
  Sex: Female

DRUGS (8)
  1. XYREM [Suspect]
     Active Substance: SODIUM OXYBATE
     Indication: FIBROMYALGIA
     Dosage: 2.25 G, BID
     Route: 048
     Dates: start: 201202, end: 201203
  2. TRAZODONE HYDROCHLORIDE. [Concomitant]
     Active Substance: TRAZODONE HYDROCHLORIDE
     Indication: PRODUCT USED FOR UNKNOWN INDICATION
     Dosage: UNK
     Dates: start: 20151130
  3. DOXYCYCLINE. [Concomitant]
     Active Substance: DOXYCYCLINE
     Indication: LYME DISEASE
  4. XYREM [Suspect]
     Active Substance: SODIUM OXYBATE
     Dosage: 7 G, TID
     Route: 048
     Dates: start: 201510
  5. HYDROMORPHONE HCL [Concomitant]
     Active Substance: HYDROMORPHONE HYDROCHLORIDE
     Indication: PRODUCT USED FOR UNKNOWN INDICATION
     Dosage: UNK
     Dates: start: 20140227, end: 20140523
  6. CLONAZEPAM. [Concomitant]
     Active Substance: CLONAZEPAM
     Indication: PRODUCT USED FOR UNKNOWN INDICATION
     Dosage: UNK
     Dates: start: 20140219, end: 20151130
  7. DILAUDID [Concomitant]
     Active Substance: HYDROMORPHONE HYDROCHLORIDE
     Indication: PRODUCT USED FOR UNKNOWN INDICATION
     Dosage: UNK
     Dates: end: 20140523
  8. XYREM [Suspect]
     Active Substance: SODIUM OXYBATE
     Dosage: DOSE ADJUSTMENTS
     Route: 048

REACTIONS (11)
  - Immune system disorder [Not Recovered/Not Resolved]
  - Dyspnoea [Unknown]
  - Lyme disease [Not Recovered/Not Resolved]
  - Vomiting [Unknown]
  - Prescribed overdose [Unknown]
  - Insomnia [Not Recovered/Not Resolved]
  - Blood pressure decreased [Unknown]
  - Nausea [Unknown]
  - Allergy to chemicals [Not Recovered/Not Resolved]
  - Hypersomnia [Not Recovered/Not Resolved]
  - Intentional product use issue [Unknown]
